FAERS Safety Report 21210721 (Version 1)
Quarter: 2022Q3

REPORT INFORMATION
  Report Type: Report from Study
  Country: NL (occurrence: NL)
  Receive Date: 20220815
  Receipt Date: 20220815
  Transmission Date: 20221026
  Serious: Yes (Other)
  Sender: FDA-Public Use
  Company Number: NL-UCBSA-2022029206

PATIENT
  Age: 66 Year
  Sex: Female
  Weight: 68 kg

DRUGS (10)
  1. EVENITY [Suspect]
     Active Substance: ROMOSOZUMAB-AQQG
     Indication: Osteoporosis
     Dosage: 210 MILLIGRAM, QMO
     Route: 065
     Dates: start: 20220505, end: 202206
  2. ACETAMINOPHEN [Concomitant]
     Active Substance: ACETAMINOPHEN
     Indication: Pain
  3. CALCIUM\VITAMIN D [Concomitant]
     Active Substance: CALCIUM\VITAMIN D
  4. PANTOZOL [Concomitant]
     Active Substance: PANTOPRAZOLE SODIUM
  5. DICLOFENAC [Concomitant]
     Active Substance: DICLOFENAC
  6. METOPROLOL [Concomitant]
     Active Substance: METOPROLOL
  7. HYDROCHLOROTHIAZIDE [Concomitant]
     Active Substance: HYDROCHLOROTHIAZIDE
  8. LERCANIDIPINE [Concomitant]
     Active Substance: LERCANIDIPINE
  9. PREDNISOLONE [Concomitant]
     Active Substance: PREDNISOLONE
  10. QUETIAPINE [Concomitant]
     Active Substance: QUETIAPINE

REACTIONS (3)
  - Rheumatoid arthritis [Not Recovered/Not Resolved]
  - Bone pain [Recovered/Resolved]
  - Arthralgia [Unknown]

NARRATIVE: CASE EVENT DATE: 20220501
